FAERS Safety Report 8782996 (Version 1)
Quarter: 2012Q4

REPORT INFORMATION
  Report Type: 
  Country: US (occurrence: US)
  Receive Date: 20120913
  Receipt Date: 20120913
  Transmission Date: 20130627
  Serious: Yes (Hospitalization)
  Sender: FDA-Public Use
  Company Number: US-JNJFOC-20120607704

PATIENT
  Age: 54 Year
  Sex: Male
  Weight: 174 kg

DRUGS (2)
  1. XARELTO [Suspect]
     Indication: CEREBROVASCULAR ACCIDENT PROPHYLAXIS
     Route: 048
     Dates: start: 20120427
  2. XARELTO [Suspect]
     Indication: ATRIAL FIBRILLATION
     Route: 048
     Dates: start: 20120427

REACTIONS (3)
  - Gastric ulcer perforation [Recovered/Resolved]
  - Gastrointestinal haemorrhage [Recovered/Resolved]
  - Heart rate abnormal [Unknown]
